FAERS Safety Report 4675677-6 (Version None)
Quarter: 2005Q2

REPORT INFORMATION
  Report Type: 
  Country: None (occurrence: None)
  Receive Date: 20050525
  Receipt Date: 20050512
  Transmission Date: 20051028
  Serious: Yes (Other)
  Sender: FDA-Public Use
  Company Number: 195881

PATIENT
  Age: 49 Year
  Sex: Female

DRUGS (7)
  1. AVONEX [Suspect]
     Indication: MULTIPLE SCLEROSIS
     Dosage: SEE IMAGE
     Route: 030
     Dates: start: 20010131, end: 20031222
  2. AVONEX [Suspect]
     Indication: MULTIPLE SCLEROSIS
     Dosage: SEE IMAGE
     Route: 030
     Dates: start: 20040225, end: 20040407
  3. LEVOTHYROXINE SODIUM [Concomitant]
  4. PAROXETINE HCL [Concomitant]
  5. DETROL [Concomitant]
  6. PARACETAMOL [Concomitant]
  7. BACLOFEN [Concomitant]

REACTIONS (1)
  - HEPATITIS [None]
